FAERS Safety Report 19682504 (Version 1)
Quarter: 2021Q3

REPORT INFORMATION
  Report Type: Spontaneous
  Country: BR (occurrence: BR)
  Receive Date: 20210810
  Receipt Date: 20210810
  Transmission Date: 20211014
  Serious: Yes (Hospitalization, Other)
  Sender: FDA-Public Use
  Company Number: BR-TAKEDA-2021TUS049006

PATIENT
  Age: 58 Year
  Sex: Male

DRUGS (3)
  1. ENTYVIO [Suspect]
     Active Substance: VEDOLIZUMAB
     Indication: PRODUCT USED FOR UNKNOWN INDICATION
     Dosage: UNK
     Route: 065
  2. MESALAZINE [Suspect]
     Active Substance: MESALAMINE
     Indication: COLITIS
     Dosage: 1 GRAM, QD
     Route: 048
  3. LOSARTAN. [Concomitant]
     Active Substance: LOSARTAN
     Indication: HYPERTENSION
     Dosage: UNK

REACTIONS (13)
  - Colitis ulcerative [Unknown]
  - Dyspnoea [Unknown]
  - Abdominal pain upper [Unknown]
  - COVID-19 [Unknown]
  - Adverse event [Unknown]
  - Weight decreased [Unknown]
  - Rash [Unknown]
  - Vomiting [Unknown]
  - Hypotension [Unknown]
  - Asthenia [Unknown]
  - Pyrexia [Unknown]
  - Anaemia [Unknown]
  - Tachycardia [Unknown]

NARRATIVE: CASE EVENT DATE: 2015
